FAERS Safety Report 16641292 (Version 1)
Quarter: 2019Q3

REPORT INFORMATION
  Report Type: Spontaneous
  Country: CN (occurrence: CN)
  Receive Date: 20190729
  Receipt Date: 20190729
  Transmission Date: 20191004
  Serious: Yes (Other)
  Sender: FDA-Public Use
  Company Number: CN-ROCHE-2356505

PATIENT
  Age: 39 Year
  Sex: Female

DRUGS (5)
  1. VEMURAFENIB. [Suspect]
     Active Substance: VEMURAFENIB
     Route: 065
     Dates: start: 20190429
  2. VEMURAFENIB. [Suspect]
     Active Substance: VEMURAFENIB
     Indication: MALIGNANT MELANOMA
     Route: 065
  3. DABRAFENIB [Concomitant]
     Active Substance: DABRAFENIB
     Indication: MALIGNANT MELANOMA
     Route: 065
     Dates: start: 20190601
  4. TRAMETINIB [Concomitant]
     Active Substance: TRAMETINIB
     Indication: MALIGNANT MELANOMA
     Route: 065
     Dates: start: 20190601
  5. VEMURAFENIB. [Suspect]
     Active Substance: VEMURAFENIB
     Route: 065
     Dates: start: 20190201

REACTIONS (9)
  - Hyperthyroidism [Unknown]
  - Headache [Recovering/Resolving]
  - Skin mass [Unknown]
  - Tumour necrosis [Unknown]
  - Fat tissue increased [Unknown]
  - Arthralgia [Recovering/Resolving]
  - Rash [Unknown]
  - Pyrexia [Unknown]
  - Back pain [Recovering/Resolving]
